FAERS Safety Report 19173829 (Version 1)
Quarter: 2021Q2

REPORT INFORMATION
  Report Type: Spontaneous
  Country: JP (occurrence: JP)
  Receive Date: 20210423
  Receipt Date: 20210423
  Transmission Date: 20210717
  Serious: Yes (Hospitalization)
  Sender: FDA-Public Use
  Company Number: JP-OTSUKA-2021_013348

PATIENT

DRUGS (1)
  1. ABILIFY [Suspect]
     Active Substance: ARIPIPRAZOLE
     Indication: SCHIZOPHRENIA
     Dosage: 24 MG, QD,EVENING
     Route: 048

REACTIONS (5)
  - Restlessness [Unknown]
  - Delusion [Unknown]
  - Malaise [Unknown]
  - Hallucination, auditory [Unknown]
  - Disturbance in attention [Unknown]
